FAERS Safety Report 8555589-8 (Version None)
Quarter: 2012Q3

REPORT INFORMATION
  Report Type: 
  Country: None (occurrence: None)
  Receive Date: 20120731
  Receipt Date: 20111103
  Transmission Date: 20120928
  Serious: No
  Sender: FDA-Public Use
  Company Number: US-ASTRAZENECA-2010SE40700

PATIENT
  Age: 42 Year
  Sex: Male

DRUGS (2)
  1. SEROQUEL XR [Suspect]
     Indication: BIPOLAR DISORDER
     Route: 048
     Dates: start: 20070101, end: 20100825
  2. SEROQUEL XR [Suspect]
     Route: 048

REACTIONS (3)
  - INSOMNIA [None]
  - NIGHTMARE [None]
  - DRUG DOSE OMISSION [None]
